FAERS Safety Report 6473275-5 (Version None)
Quarter: 2009Q4

REPORT INFORMATION
  Report Type: 
  Country: None (occurrence: None)
  Receive Date: 20091204
  Receipt Date: 20080905
  Transmission Date: 20100525
  Serious: Yes (Other)
  Sender: FDA-Public Use
  Company Number: US-ELI_LILLY_AND_COMPANY-US200809002444

PATIENT
  Age: 54 Year
  Sex: Female

DRUGS (14)
  1. ALIMTA [Suspect]
     Indication: MALIGNANT PERITONEAL NEOPLASM
     Dosage: 500 MG/M2, UNK
     Dates: start: 20080606
  2. ALIMTA [Suspect]
     Dosage: 600 MG/M2, UNK
     Dates: end: 20080806
  3. ZYPREXA [Concomitant]
  4. FOLIC ACID [Concomitant]
  5. RANITIDINE [Concomitant]
     Dosage: 150 MG, 2/D
  6. WARFARIN SODIUM [Concomitant]
  7. TRAMADOL HCL [Concomitant]
  8. VITAMIN B-12 [Concomitant]
  9. NEURONTIN [Concomitant]
  10. LASIX [Concomitant]
  11. ATIVAN [Concomitant]
  12. SENNA [Concomitant]
  13. COLACE [Concomitant]
  14. TYLENOL /USA/ [Concomitant]

REACTIONS (3)
  - OEDEMA [None]
  - PERICARDIAL EFFUSION [None]
  - WEIGHT INCREASED [None]
